FAERS Safety Report 25605122 (Version 1)
Quarter: 2025Q3

REPORT INFORMATION
  Report Type: Other
  Country: US (occurrence: US)
  Receive Date: 20250725
  Receipt Date: 20250725
  Transmission Date: 20251021
  Serious: Yes (Hospitalization)
  Sender: ESJAY PHARMA
  Company Number: US-ESJAY PHARMA-000856

PATIENT
  Age: 78 Year
  Sex: Male

DRUGS (9)
  1. METHYLPHENIDATE HYDROCHLORIDE [Suspect]
     Active Substance: METHYLPHENIDATE HYDROCHLORIDE
     Indication: Catatonia
  2. METHYLPREDNISOLONE [Concomitant]
     Active Substance: METHYLPREDNISOLONE
     Indication: Autoimmune hepatitis
  3. LORAZEPAM [Concomitant]
     Active Substance: LORAZEPAM
     Indication: Catatonia
  4. MEMANTINE [Concomitant]
     Active Substance: MEMANTINE
     Indication: Catatonia
  5. ZOLPIDEM [Concomitant]
     Active Substance: ZOLPIDEM TARTRATE
     Indication: Catatonia
  6. AMANTADINE [Concomitant]
     Active Substance: AMANTADINE
     Indication: Catatonia
  7. METHYLPHENIDATE HYDROCHLORIDE [Suspect]
     Active Substance: METHYLPHENIDATE HYDROCHLORIDE
     Indication: Catatonia
  8. ZOLPIDEM [Concomitant]
     Active Substance: ZOLPIDEM TARTRATE
     Indication: Catatonia
  9. LORAZEPAM [Concomitant]
     Active Substance: LORAZEPAM
     Indication: Catatonia

REACTIONS (2)
  - Off label use [Unknown]
  - Tachycardia [Unknown]
